FAERS Safety Report 13188386 (Version 5)
Quarter: 2017Q2

REPORT INFORMATION
  Report Type: Spontaneous
  Country: KR (occurrence: KR)
  Receive Date: 20170206
  Receipt Date: 20170601
  Transmission Date: 20170830
  Serious: Yes (Hospitalization, Other)
  Sender: FDA-Public Use
  Company Number: KR-009507513-1702KOR001601

PATIENT
  Age: 45 Year
  Sex: Female
  Weight: 43 kg

DRUGS (46)
  1. EMEND (FOSAPREPITANT DIMEGLUMINE) [Suspect]
     Active Substance: FOSAPREPITANT DIMEGLUMINE
     Indication: PROPHYLAXIS OF NAUSEA AND VOMITING
     Dosage: 150 MG, ONCE
     Route: 042
     Dates: start: 20160926, end: 20160926
  2. EMEND (FOSAPREPITANT DIMEGLUMINE) [Suspect]
     Active Substance: FOSAPREPITANT DIMEGLUMINE
     Dosage: 150 MG, ONCE
     Route: 042
     Dates: start: 20161212, end: 20161212
  3. DEXAMETHASONE. [Concomitant]
     Active Substance: DEXAMETHASONE
     Dosage: 8 TABLET, TID
     Route: 048
     Dates: start: 20160927, end: 20160927
  4. DEXAMETHASONE. [Concomitant]
     Active Substance: DEXAMETHASONE
     Dosage: 8 TABLET, BID
     Route: 048
     Dates: start: 20161029, end: 20161029
  5. DEXAMETHASONE. [Concomitant]
     Active Substance: DEXAMETHASONE
     Dosage: 12 TABLET, BID
     Route: 048
     Dates: start: 20161117, end: 20161117
  6. DEXAMETHASONE. [Concomitant]
     Active Substance: DEXAMETHASONE
     Dosage: 8 TABLET, ONCE
     Route: 048
     Dates: start: 20161120, end: 20161120
  7. SANCUSO [Concomitant]
     Active Substance: GRANISETRON
     Indication: PROPHYLAXIS OF NAUSEA AND VOMITING
     Dosage: 34.3 MG, ONCE, SIZE: 80.2X66.6 MM2
     Route: 062
     Dates: start: 20160925, end: 20160925
  8. NASEA [Concomitant]
     Active Substance: RAMOSETRON HYDROCHLORIDE
     Dosage: 0.1 MG, ONCE
     Route: 048
     Dates: start: 20161118, end: 20161118
  9. NASEA [Concomitant]
     Active Substance: RAMOSETRON HYDROCHLORIDE
     Dosage: 0.1 MG, QD
     Route: 048
     Dates: start: 20161119, end: 20161120
  10. DEXAMETHASONE. [Concomitant]
     Active Substance: DEXAMETHASONE
     Dosage: 8 TABLET, BID
     Route: 048
     Dates: start: 20160928, end: 20160928
  11. DEXAMETHASONE. [Concomitant]
     Active Substance: DEXAMETHASONE
     Dosage: 8 TABLET, BID
     Route: 048
     Dates: start: 20161213, end: 20161215
  12. SANCUSO [Concomitant]
     Active Substance: GRANISETRON
     Dosage: 34.3 MG, ONCE, SIZE: 80.2X66.6 MM2
     Route: 062
     Dates: start: 20161026, end: 20161026
  13. NASEA [Concomitant]
     Active Substance: RAMOSETRON HYDROCHLORIDE
     Indication: PROPHYLAXIS OF NAUSEA AND VOMITING
     Dosage: 0.3 MG, ONCE
     Route: 042
     Dates: start: 20160926, end: 20160926
  14. NASEA [Concomitant]
     Active Substance: RAMOSETRON HYDROCHLORIDE
     Dosage: 0.1 MG, ONCE
     Route: 048
     Dates: start: 20160928, end: 20160928
  15. NASEA [Concomitant]
     Active Substance: RAMOSETRON HYDROCHLORIDE
     Dosage: 0.1 MG, BID
     Route: 048
     Dates: start: 20161028, end: 20161028
  16. ENTELON [Concomitant]
     Indication: PROPHYLAXIS
     Dosage: 150 MG, BID
     Route: 048
     Dates: start: 20160925, end: 20161226
  17. CARDIOXANE [Concomitant]
     Active Substance: DEXRAZOXANE HYDROCHLORIDE
     Dosage: 1 G, ONCE
     Route: 042
     Dates: start: 20161027, end: 20161027
  18. CARDIOXANE [Concomitant]
     Active Substance: DEXRAZOXANE HYDROCHLORIDE
     Dosage: 1 G, ONCE
     Route: 042
     Dates: start: 20161117, end: 20161117
  19. ADRIAMYCIN [Concomitant]
     Active Substance: DOXORUBICIN HYDROCHLORIDE
     Indication: CHEMOTHERAPY
     Dosage: 205.5 MG, ONCE, CYCLE 1
     Route: 042
     Dates: start: 20160926, end: 20160926
  20. ENDOXAN [Concomitant]
     Active Substance: CYCLOPHOSPHAMIDE
     Dosage: 7.5 MG, ONCE, CYCLE 2
     Route: 042
     Dates: start: 20161027, end: 20161027
  21. DEXAMETHASONE. [Concomitant]
     Active Substance: DEXAMETHASONE
     Dosage: 8 TABLET, ONCE
     Route: 048
     Dates: start: 20160929, end: 20160929
  22. SANCUSO [Concomitant]
     Active Substance: GRANISETRON
     Dosage: 34.3 MG, ONCE, SIZE: 80.2X66.6 MM2
     Route: 062
     Dates: start: 20161116, end: 20161116
  23. SANCUSO [Concomitant]
     Active Substance: GRANISETRON
     Dosage: 34.3 MG, ONCE, SIZE: 80.2X66.6 MM2
     Route: 062
     Dates: start: 20161211, end: 20161211
  24. NASEA [Concomitant]
     Active Substance: RAMOSETRON HYDROCHLORIDE
     Indication: PROPHYLAXIS OF NAUSEA AND VOMITING
     Dosage: 0.1 MG, BID
     Route: 048
     Dates: start: 20160927, end: 20160927
  25. NASEA [Concomitant]
     Active Substance: RAMOSETRON HYDROCHLORIDE
     Dosage: 0.1 MG, ONCE
     Route: 048
     Dates: start: 20161029, end: 20161029
  26. CARDIOXANE [Concomitant]
     Active Substance: DEXRAZOXANE HYDROCHLORIDE
     Dosage: 1 G, ONCE
     Route: 042
     Dates: start: 20161212, end: 20161212
  27. EMEND (FOSAPREPITANT DIMEGLUMINE) [Suspect]
     Active Substance: FOSAPREPITANT DIMEGLUMINE
     Dosage: 150 MG, ONCE
     Route: 042
     Dates: start: 20161027, end: 20161027
  28. ADRIAMYCIN [Concomitant]
     Active Substance: DOXORUBICIN HYDROCHLORIDE
     Dosage: 67.32 MG, ONCE, CYCLE 3
     Route: 042
     Dates: start: 20161117, end: 20161117
  29. ENDOXAN [Concomitant]
     Active Substance: CYCLOPHOSPHAMIDE
     Dosage: 673 MG, ONCE, CYCLE 3
     Route: 042
     Dates: start: 20161117, end: 20161117
  30. DEXAMETHASONE. [Concomitant]
     Active Substance: DEXAMETHASONE
     Dosage: 8 TABLET, ONCE
     Route: 048
     Dates: start: 20161030, end: 20161030
  31. DEXAMETHASONE. [Concomitant]
     Active Substance: DEXAMETHASONE
     Dosage: 8 TABLET, BID
     Route: 048
     Dates: start: 20161119, end: 20161119
  32. NASEA [Concomitant]
     Active Substance: RAMOSETRON HYDROCHLORIDE
     Dosage: 0.3 MG, ONCE
     Route: 042
     Dates: start: 20161117, end: 20161117
  33. ENDOXAN [Concomitant]
     Active Substance: CYCLOPHOSPHAMIDE
     Indication: CHEMOTHERAPY
     Dosage: 800 MG, ONCE, CYCLE 1
     Route: 042
     Dates: start: 20160926, end: 20160926
  34. ENDOXAN [Concomitant]
     Active Substance: CYCLOPHOSPHAMIDE
     Dosage: 673 MG, ONCE, CYCLE 4
     Route: 042
     Dates: start: 20161212, end: 20161212
  35. DEXAMETHASONE. [Concomitant]
     Active Substance: DEXAMETHASONE
     Dosage: 8 TABLET,TID
     Route: 048
     Dates: start: 20161028, end: 20161028
  36. NASEA [Concomitant]
     Active Substance: RAMOSETRON HYDROCHLORIDE
     Dosage: 0.3 MG, ONCE
     Route: 042
     Dates: start: 20161212, end: 20161212
  37. NASEA [Concomitant]
     Active Substance: RAMOSETRON HYDROCHLORIDE
     Dosage: 0.1 MG, QD
     Route: 048
     Dates: start: 20161213, end: 20161215
  38. EMEND (FOSAPREPITANT DIMEGLUMINE) [Suspect]
     Active Substance: FOSAPREPITANT DIMEGLUMINE
     Dosage: 150 MG, ONCE
     Route: 042
     Dates: start: 20161117, end: 20161117
  39. CARDIOXANE [Concomitant]
     Active Substance: DEXRAZOXANE HYDROCHLORIDE
     Indication: PROPHYLAXIS
     Dosage: 1 G, ONCE
     Route: 042
     Dates: start: 20160926, end: 20160926
  40. DEXAMETHASONE. [Concomitant]
     Active Substance: DEXAMETHASONE
     Indication: PROPHYLAXIS OF NAUSEA AND VOMITING
     Dosage: 12 TABLET, BID
     Route: 048
     Dates: start: 20160926, end: 20160926
  41. DEXAMETHASONE. [Concomitant]
     Active Substance: DEXAMETHASONE
     Dosage: 8 TABLET, TID
     Route: 048
     Dates: start: 20161118, end: 20161118
  42. DEXAMETHASONE. [Concomitant]
     Active Substance: DEXAMETHASONE
     Dosage: 12 TABLET, BID
     Route: 048
     Dates: start: 20161212, end: 20161212
  43. ADRIAMYCIN [Concomitant]
     Active Substance: DOXORUBICIN HYDROCHLORIDE
     Dosage: 71 MG, ONCE, CYCLE 2
     Route: 042
     Dates: start: 20161027, end: 20161027
  44. ADRIAMYCIN [Concomitant]
     Active Substance: DOXORUBICIN HYDROCHLORIDE
     Dosage: 67.32 MG, ONCE, CYCLE 4
     Route: 042
     Dates: start: 20161212, end: 20161212
  45. DEXAMETHASONE. [Concomitant]
     Active Substance: DEXAMETHASONE
     Dosage: 12 TABLET, BID
     Route: 048
     Dates: start: 20161027, end: 20161027
  46. NASEA [Concomitant]
     Active Substance: RAMOSETRON HYDROCHLORIDE
     Dosage: 0.3 MG, ONCE
     Route: 042
     Dates: start: 20161027, end: 20161027

REACTIONS (3)
  - Loss of consciousness [Unknown]
  - Febrile neutropenia [Recovered/Resolved]
  - Febrile neutropenia [Recovered/Resolved]

NARRATIVE: CASE EVENT DATE: 20161006
